FAERS Safety Report 12903999 (Version 2)
Quarter: 2016Q4

REPORT INFORMATION
  Report Type: Report from Study
  Country: CA (occurrence: CA)
  Receive Date: 20161102
  Receipt Date: 20161110
  Transmission Date: 20170207
  Serious: Yes (Hospitalization)
  Sender: FDA-Public Use
  Company Number: CA-JNJFOC-20161026050

PATIENT
  Age: 85 Year
  Sex: Female
  Weight: 68 kg

DRUGS (1)
  1. REMICADE [Suspect]
     Active Substance: INFLIXIMAB
     Indication: RHEUMATOID ARTHRITIS
     Route: 042
     Dates: start: 2005

REACTIONS (3)
  - Chest pain [Unknown]
  - Dyspnoea [Unknown]
  - Stent placement [Unknown]

NARRATIVE: CASE EVENT DATE: 20161022
